FAERS Safety Report 24149528 (Version 1)
Quarter: 2024Q3

REPORT INFORMATION
  Report Type: Spontaneous
  Country: FR (occurrence: FR)
  Receive Date: 20240730
  Receipt Date: 20240730
  Transmission Date: 20241016
  Serious: Yes (Death, Other)
  Sender: ENDO
  Company Number: FR-ENDO USA, INC.-2024-003023

PATIENT
  Age: 73 Year
  Sex: Male

DRUGS (5)
  1. EDEX [Suspect]
     Active Substance: ALPROSTADIL
     Indication: Erectile dysfunction
     Dosage: 1 DOSAGE FORM (TOTAL), UNKNOWN
     Route: 017
     Dates: start: 20240630
  2. EDEX [Suspect]
     Active Substance: ALPROSTADIL
     Indication: Erectile dysfunction
     Dosage: 1 DOSAGE FORM (TOTAL), UNKNOWN
     Route: 017
     Dates: start: 20240630
  3. EDEX [Suspect]
     Active Substance: ALPROSTADIL
     Indication: Erectile dysfunction
     Dosage: 1 DOSAGE FORM (TOTAL), UNKNOWN
     Route: 017
     Dates: start: 20240630
  4. EDEX [Suspect]
     Active Substance: ALPROSTADIL
     Indication: Erectile dysfunction
     Dosage: 1 DOSAGE FORM (TOTAL), UNKNOWN
     Route: 017
     Dates: start: 20240630
  5. EDEX [Suspect]
     Active Substance: ALPROSTADIL
     Indication: Erectile dysfunction
     Dosage: 1 DOSAGE FORM (TOTAL), UNKNOWN
     Route: 017
     Dates: start: 20240630

REACTIONS (1)
  - Cardiac arrest [Fatal]

NARRATIVE: CASE EVENT DATE: 20240630
